FAERS Safety Report 6810749-9 (Version None)
Quarter: 2010Q2

REPORT INFORMATION
  Report Type: 
  Country: None (occurrence: None)
  Receive Date: 20100629
  Receipt Date: 20100629
  Transmission Date: 20101027
  Serious: Yes (Hospitalization)
  Sender: FDA-Public Use
  Company Number: None

PATIENT
  Age: 57 Year
  Sex: Female
  Weight: 89.7 kg

DRUGS (21)
  1. ABRAXANE [Suspect]
     Indication: BREAST CANCER METASTATIC
     Dosage: 194MG -100MG/M2- WEEKLY 3 /4 WEEKS IV
     Route: 042
     Dates: start: 20091229, end: 20100628
  2. CARBOPLATIN NA NA [Suspect]
     Indication: BREAST CANCER METASTATIC
     Dosage: 256 MG -AUC 2- WEEKLY 3/4 WEEKS IV
     Route: 042
     Dates: start: 20091229, end: 20100628
  3. XANAX [Concomitant]
  4. OXYCODONE HCL [Concomitant]
  5. METFORMIN HCL [Concomitant]
  6. CYMBALTA [Concomitant]
  7. PROZAC [Concomitant]
  8. LIPITOR [Concomitant]
  9. NORVASC [Concomitant]
  10. ATIVAN [Concomitant]
  11. PEPCID [Concomitant]
  12. ALLEGRA -FEXOFENADINE HCL- [Concomitant]
  13. PHENERGAN -PROMETHAZINE- [Concomitant]
  14. KYTRIL -GANISETRON- [Concomitant]
  15. DEXAMETHASONE [Concomitant]
  16. PREDNISONE [Concomitant]
  17. DOCUSATE SODIUM [Concomitant]
  18. MIRALAX [Concomitant]
  19. SALINE NASAL SPRAY [Concomitant]
  20. MAGIC MOUTHWASH [Concomitant]
  21. NEUPOGEN [Concomitant]

REACTIONS (4)
  - ASTHENIA [None]
  - DYSPNOEA [None]
  - HAEMOGLOBIN DECREASED [None]
  - HAEMORRHOIDAL HAEMORRHAGE [None]
